FAERS Safety Report 21556019 (Version 1)
Quarter: 2022Q4

REPORT INFORMATION
  Report Type: Other
  Country: NL (occurrence: NL)
  Receive Date: 20221104
  Receipt Date: 20221104
  Transmission Date: 20230113
  Serious: Yes (Other)
  Sender: FDA-Public Use
  Company Number: None

PATIENT

DRUGS (1)
  1. EZETIMIBE\SIMVASTATIN [Suspect]
     Active Substance: EZETIMIBE\SIMVASTATIN
     Indication: Product used for unknown indication
     Dosage: 1 DOSAGE FORM, OD
     Route: 065
     Dates: start: 20220630, end: 20220901

REACTIONS (4)
  - Stoma site haemorrhage [Recovered/Resolved]
  - Stoma site pain [Recovered/Resolved]
  - Diarrhoea [Recovered/Resolved]
  - Product substitution issue [Unknown]
